FAERS Safety Report 8567533-8 (Version None)
Quarter: 2012Q3

REPORT INFORMATION
  Report Type: 
  Country: None (occurrence: None)
  Receive Date: 20120803
  Receipt Date: 20110920
  Transmission Date: 20120928
  Serious: No
  Sender: FDA-Public Use
  Company Number: US-ABBOTT-11P-163-0856471-00

PATIENT
  Sex: Female
  Weight: 86.26 kg

DRUGS (3)
  1. NIASPAN [Suspect]
     Indication: PRODUCT USED FOR UNKNOWN INDICATION
     Dosage: 500 MG
     Dates: start: 20110809
  2. UNKNOWN BP MEDICATION [Concomitant]
     Indication: HYPERTENSION
  3. BENICAR [Concomitant]
     Indication: PRODUCT USED FOR UNKNOWN INDICATION

REACTIONS (4)
  - SKIN BURNING SENSATION [None]
  - PAIN OF SKIN [None]
  - SLEEP DISORDER [None]
  - PARAESTHESIA [None]
